FAERS Safety Report 16030158 (Version 1)
Quarter: 2019Q2

REPORT INFORMATION
  Report Type: Spontaneous
  Country: US (occurrence: US)
  Receive Date: 20190304
  Receipt Date: 20190304
  Transmission Date: 20190711
  Serious: Yes (Other)
  Sender: FDA-Public Use
  Company Number: None

PATIENT
  Age: 56 Year
  Sex: Female
  Weight: 46.35 kg

DRUGS (6)
  1. RISEDRONATE SOD 150MG TABLETS [Suspect]
     Active Substance: RISEDRONATE SODIUM
     Indication: OSTEOPOROSIS
     Dosage: ?          QUANTITY:1 CAPSULE(S);OTHER FREQUENCY:ONCE EVERY MONTH;?
     Route: 048
     Dates: start: 20190301, end: 20190301
  2. CALCIUM CITRATE [Concomitant]
     Active Substance: CALCIUM CITRATE
  3. VAGINAL DILATOR [Concomitant]
  4. ESTRADIOL. [Concomitant]
     Active Substance: ESTRADIOL
  5. ASPIRIN. [Concomitant]
     Active Substance: ASPIRIN
  6. NATURES MADE ADULT GUMMIES FOR HER PLUS OMEGA 3S [Concomitant]

REACTIONS (3)
  - Arthralgia [None]
  - Spinal pain [None]
  - Influenza like illness [None]

NARRATIVE: CASE EVENT DATE: 20190301
